FAERS Safety Report 9959442 (Version 1)
Quarter: 2014Q1

REPORT INFORMATION
  Report Type: Spontaneous
  Country: US (occurrence: US)
  Receive Date: 20140305
  Receipt Date: 20140305
  Transmission Date: 20141002
  Serious: No
  Sender: FDA-Public Use
  Company Number: US-ABBVIE-13P-163-1106737-00

PATIENT
  Age: 46 Year
  Sex: Male
  Weight: 96.25 kg

DRUGS (4)
  1. HUMIRA [Suspect]
     Indication: PSORIASIS
     Dates: start: 201209
  2. ANDROGEL [Suspect]
     Indication: BLOOD TESTOSTERONE DECREASED
     Dates: start: 20130429
  3. REQUIP [Concomitant]
     Indication: RESTLESS LEGS SYNDROME
  4. LEXAPRO [Concomitant]
     Indication: DEPRESSION

REACTIONS (4)
  - Erectile dysfunction [Recovering/Resolving]
  - Weight increased [Recovered/Resolved]
  - Loss of libido [Not Recovered/Not Resolved]
  - Erectile dysfunction [Not Recovered/Not Resolved]
